FAERS Safety Report 11707483 (Version 1)
Quarter: 2015Q4

REPORT INFORMATION
  Report Type: Spontaneous
  Country: US (occurrence: US)
  Receive Date: 20151106
  Receipt Date: 20151106
  Transmission Date: 20160304
  Serious: Yes (Other)
  Sender: FDA-Public Use
  Company Number: US-BAXTER-2015BAX058912

PATIENT
  Sex: Female
  Weight: 175.1 kg

DRUGS (9)
  1. MORPHINE [Suspect]
     Active Substance: MORPHINE
     Indication: PRODUCT USED FOR UNKNOWN INDICATION
     Dosage: PRE INCISION, INITIAL DOSE
     Route: 065
  2. BUPIVACAINE [Suspect]
     Active Substance: BUPIVACAINE
     Indication: GENERAL ANAESTHESIA
     Dosage: PRE-INCISION, IN TWO DIVIDED DOSES-T5
     Route: 037
  3. BUPIVACAINE [Suspect]
     Active Substance: BUPIVACAINE
     Indication: MAINTENANCE OF ANAESTHESIA
     Dosage: MAINTENANCE DOSE
     Route: 065
  4. CEFAZOLIN INJECTION [Suspect]
     Active Substance: CEFAZOLIN
     Indication: ANTIBIOTIC PROPHYLAXIS
     Dosage: BEFORE INCISION
     Route: 042
  5. FENTANYL. [Suspect]
     Active Substance: FENTANYL
     Indication: PRODUCT USED FOR UNKNOWN INDICATION
     Dosage: PRE INCISION
     Route: 065
  6. MORPHINE [Suspect]
     Active Substance: MORPHINE
     Indication: DRUG THERAPY
     Dosage: AT THE TIME OF SURGERY
     Route: 037
  7. BUPIVACAINE [Suspect]
     Active Substance: BUPIVACAINE
     Dosage: INCREMENTAL , ISOBARIC BUPIVACAINE
     Route: 040
  8. OXYTOCIN. [Suspect]
     Active Substance: OXYTOCIN
     Indication: PRODUCT USED FOR UNKNOWN INDICATION
     Dosage: 18 UNITS/HOUR
     Route: 042
  9. CHLORHEXIDINE [Concomitant]
     Active Substance: CHLORHEXIDINE
     Indication: PRODUCT USED FOR UNKNOWN INDICATION
     Route: 065

REACTIONS (2)
  - Exposure during pregnancy [Recovered/Resolved]
  - Postpartum haemorrhage [Unknown]
